FAERS Safety Report 15459384 (Version 2)
Quarter: 2018Q4

REPORT INFORMATION
  Report Type: Spontaneous
  Country: US (occurrence: US)
  Receive Date: 20181003
  Receipt Date: 20181108
  Transmission Date: 20190204
  Serious: Yes (Hospitalization)
  Sender: FDA-Public Use
  Company Number: US-ASTRAZENECA-2018SF24660

PATIENT
  Age: 911 Month
  Sex: Female
  Weight: 45.4 kg

DRUGS (1)
  1. SYMBICORT [Suspect]
     Active Substance: BUDESONIDE\FORMOTEROL FUMARATE DIHYDRATE
     Indication: BRONCHITIS
     Dosage: 80/4.5 MCG 1 PUFF IN THE MORNING AND 1 PUFF IN THE EVENING
     Route: 055

REACTIONS (10)
  - Fall [Unknown]
  - Choking [Unknown]
  - Oxygen saturation abnormal [Unknown]
  - Off label use [Unknown]
  - Peripheral nerve injury [Unknown]
  - Blood sodium decreased [Unknown]
  - Product dose omission [Unknown]
  - Product use issue [Unknown]
  - Device issue [Unknown]
  - Feeling abnormal [Unknown]

NARRATIVE: CASE EVENT DATE: 201807
